FAERS Safety Report 20376828 (Version 1)
Quarter: 2022Q1

REPORT INFORMATION
  Report Type: Spontaneous
  Country: FR (occurrence: FR)
  Receive Date: 20220125
  Receipt Date: 20220125
  Transmission Date: 20220424
  Serious: Yes (Hospitalization)
  Sender: FDA-Public Use
  Company Number: None

PATIENT
  Age: 77 Year
  Sex: Male
  Weight: 68 kg

DRUGS (1)
  1. BAVENCIO [Suspect]
     Active Substance: AVELUMAB
     Indication: Transitional cell carcinoma
     Dates: start: 20210726

REACTIONS (2)
  - Thyroid disorder [Not Recovered/Not Resolved]
  - Anti-thyroid antibody increased [Not Recovered/Not Resolved]

NARRATIVE: CASE EVENT DATE: 20211101
